FAERS Safety Report 9787958 (Version 1)
Quarter: 2013Q4

REPORT INFORMATION
  Report Type: Spontaneous
  Country: US (occurrence: None)
  Receive Date: 20131227
  Receipt Date: 20131227
  Transmission Date: 20140711
  Serious: Yes (Death, Hospitalization)
  Sender: FDA-Public Use
  Company Number: None

PATIENT
  Age: 79 Year
  Sex: Female
  Weight: 50 kg

DRUGS (10)
  1. COUMADIN [Suspect]
     Indication: ATRIAL FIBRILLATION
     Dosage: WEDNESDAY
     Route: 048
  2. COUMADIN [Suspect]
     Indication: ATRIAL FIBRILLATION
     Dosage: SSMTTHF
  3. SIMVASTATIN [Concomitant]
  4. METOPROLOL [Concomitant]
  5. TRAMADOL [Concomitant]
  6. ESCITALOPRAM [Concomitant]
  7. PROTONIX [Concomitant]
  8. LISINOPRIL [Concomitant]
  9. FERROUS SULFATE [Concomitant]
  10. ASPIRIN [Concomitant]

REACTIONS (11)
  - Gastrointestinal haemorrhage [None]
  - Cough [None]
  - Haemoglobin decreased [None]
  - International normalised ratio increased [None]
  - Haemoptysis [None]
  - Acute respiratory failure [None]
  - Pulmonary mass [None]
  - Cardiopulmonary failure [None]
  - Pulmonary haemorrhage [None]
  - Incorrect dose administered [None]
  - Foreign body [None]
